FAERS Safety Report 19125956 (Version 2)
Quarter: 2021Q2

REPORT INFORMATION
  Report Type: Other
  Country: TR (occurrence: TR)
  Receive Date: 20210413
  Receipt Date: 20210621
  Transmission Date: 20210717
  Serious: Yes (Other)
  Sender: FDA-Public Use
  Company Number: TR-ROCHE-2807453

PATIENT

DRUGS (2)
  1. OCRELIZUMAB. [Suspect]
     Active Substance: OCRELIZUMAB
     Dosage: FIRST 300 MG INFUSION IS FOLLOWED BY A SECOND 300 MG INFUSION AFTER 2 WEEKS. SUBSEQUENT OCRELIZUMAB
     Route: 042
  2. OCRELIZUMAB. [Suspect]
     Active Substance: OCRELIZUMAB
     Indication: MULTIPLE SCLEROSIS
     Dosage: FIRST 300 MG INFUSION IS FOLLOWED BY A SECOND 300 MG INFUSION AFTER 2 WEEKS. SUBSEQUENT OCRELIZUMAB
     Route: 042

REACTIONS (5)
  - Lymphopenia [Unknown]
  - Infection [Unknown]
  - Infusion related reaction [Unknown]
  - Upper respiratory tract infection [Unknown]
  - Varicella virus test positive [Unknown]
